FAERS Safety Report 4628635-1 (Version None)
Quarter: 2005Q2

REPORT INFORMATION
  Report Type: 
  Country: None (occurrence: None)
  Receive Date: 20050406
  Receipt Date: 20050202
  Transmission Date: 20051028
  Serious: Yes (Other)
  Sender: FDA-Public Use
  Company Number: CH-MERCK-0502CHE00005

PATIENT
  Age: 52 Year
  Sex: Male
  Weight: 90 kg

DRUGS (15)
  1. CANCIDAS [Suspect]
     Indication: SEPSIS
     Route: 042
     Dates: start: 20050114, end: 20050201
  2. TAZOBACTAM SODIUM AND PIPERACILLIN SODIUM [Concomitant]
     Route: 065
     Dates: end: 20050126
  3. ESOMEPRAZOLE MAGNESIUM [Concomitant]
     Route: 048
  4. ACENOCOUMAROL [Concomitant]
     Route: 048
  5. EPOETIN ALFA [Concomitant]
     Indication: RENAL FAILURE ACUTE
     Route: 042
  6. FLUCONAZOLE [Concomitant]
     Route: 048
     Dates: start: 20050101, end: 20050101
  7. MIDAZOLAM HYDROCHLORIDE [Concomitant]
     Route: 065
  8. HEPARIN SODIUM [Concomitant]
     Route: 065
  9. METOCLOPRAMIDE HYDROCHLORIDE [Concomitant]
     Route: 065
  10. METOCLOPRAMIDE HYDROCHLORIDE [Concomitant]
     Route: 065
  11. METOPROLOL [Concomitant]
     Route: 048
  12. SUFENTANIL [Concomitant]
     Route: 065
  13. LORAZEPAM [Concomitant]
     Route: 065
  14. CLONIDINE [Concomitant]
     Route: 065
  15. ANTITHROMBIN III [Concomitant]
     Route: 065

REACTIONS (5)
  - BLINDNESS TRANSIENT [None]
  - COORDINATION ABNORMAL [None]
  - DELIRIUM [None]
  - ENCEPHALOPATHY [None]
  - LEUKOENCEPHALOPATHY [None]
